FAERS Safety Report 5738386-8 (Version None)
Quarter: 2008Q2

REPORT INFORMATION
  Report Type: 
  Country: None (occurrence: None)
  Receive Date: 20080513
  Receipt Date: 20080506
  Transmission Date: 20081010
  Serious: Yes (Other)
  Sender: FDA-Public Use
  Company Number: 2008003102

PATIENT
  Age: 64 Year
  Sex: Female

DRUGS (1)
  1. LISTERINE WHITENING PRE-BRUSH RINSE (NO ACTIVE INGREDIENT) [Suspect]
     Dosage: 1/2 CUP ONCE,ORAL
     Route: 048
     Dates: start: 20080129, end: 20080129

REACTIONS (3)
  - BURNING SENSATION [None]
  - LIP BLISTER [None]
  - STOMATITIS [None]
